FAERS Safety Report 7446618-3 (Version None)
Quarter: 2011Q2

REPORT INFORMATION
  Report Type: 
  Country: None (occurrence: None)
  Receive Date: 20110429
  Receipt Date: 20110428
  Transmission Date: 20111010
  Serious: Yes (Life-Threatening)
  Sender: FDA-Public Use
  Company Number: PHHY2011GB35852

PATIENT
  Age: 83 Year
  Sex: Female

DRUGS (17)
  1. PARACETAMOL [Concomitant]
  2. ALBUTEROL SULFATE AUTOHALER [Concomitant]
  3. BECLOMETHASONE AQUEOUS [Concomitant]
  4. GALANTAMINE HYDROBROMIDE [Concomitant]
  5. CIPROFLOXACIN [Suspect]
     Indication: PNEUMONIA
     Dosage: 750 MG, BID
     Route: 048
     Dates: start: 20110407, end: 20110408
  6. OMEPRAZOLE [Concomitant]
  7. DIPYRIDAMOLE [Concomitant]
     Dosage: UNK
  8. NUTRITION SUPPLEMENTS [Concomitant]
  9. CARBOCISTEINE [Concomitant]
  10. FERROUS SULFATE TAB [Concomitant]
  11. GAVISCON [Concomitant]
  12. IPRATROPIUM BROMIDE [Concomitant]
  13. AMIODARONE HCL [Concomitant]
  14. ASPIRIN [Concomitant]
  15. AZTREONAM [Concomitant]
  16. FLUOXETINE [Concomitant]
  17. FRAGMIN [Concomitant]

REACTIONS (1)
  - HYPOGLYCAEMIA [None]
